FAERS Safety Report 7779148-X (Version None)
Quarter: 2011Q3

REPORT INFORMATION
  Report Type: 
  Country: None (occurrence: None)
  Receive Date: 20110926
  Receipt Date: 20110920
  Transmission Date: 20111222
  Serious: Yes (Other)
  Sender: FDA-Public Use
  Company Number: PHEH2011US04670

PATIENT
  Age: 60 Year
  Sex: Female

DRUGS (8)
  1. ANTIHISTAMINES [Concomitant]
     Dosage: UNK UKN, UNK
  2. LEVOXYL [Concomitant]
     Dosage: UNK UKN, UNK
  3. VITAMIN D [Concomitant]
     Dosage: UNK UKN, UNK
  4. PREMARIN [Suspect]
     Dosage: UNK UKN, UNK
  5. VIVELLE-DOT [Suspect]
     Dosage: 0.025 MG, TWICE WEEKLY
     Route: 062
  6. CLIMARA [Suspect]
     Indication: HOT FLUSH
     Dosage: 0.0375 MG, ONCE WEEKLY
  7. FOLGARD [Concomitant]
     Dosage: UNK UKN, UNK
  8. LOSARTAN POTASSIUM [Concomitant]
     Dosage: UNK UKN, UNK

REACTIONS (8)
  - COUGH [None]
  - DYSPHONIA [None]
  - FLUSHING [None]
  - ASTHMA [None]
  - INCREASED UPPER AIRWAY SECRETION [None]
  - INFECTION [None]
  - DRUG HYPERSENSITIVITY [None]
  - GENERAL PHYSICAL HEALTH DETERIORATION [None]
